FAERS Safety Report 5351190-8 (Version None)
Quarter: 2007Q2

REPORT INFORMATION
  Report Type: 
  Country: None (occurrence: None)
  Receive Date: 20070608
  Receipt Date: 20070528
  Transmission Date: 20071010
  Serious: Yes (Hospitalization)
  Sender: FDA-Public Use
  Company Number: PT-PFIZER INC-2007042255

PATIENT
  Sex: Female

DRUGS (4)
  1. CHAMPIX [Suspect]
     Indication: EX-SMOKER
     Dosage: DAILY DOSE:1MG
     Route: 048
     Dates: start: 20070301, end: 20070519
  2. THYRAX [Concomitant]
  3. CIPRALEX [Concomitant]
     Route: 048
  4. YASMIN [Concomitant]

REACTIONS (3)
  - MALAISE [None]
  - PULMONARY EMBOLISM [None]
  - PULMONARY HYPERTENSION [None]
